FAERS Safety Report 8002961-0 (Version None)
Quarter: 2011Q4

REPORT INFORMATION
  Report Type: 
  Country: None (occurrence: None)
  Receive Date: 20111222
  Receipt Date: 20110512
  Transmission Date: 20120403
  Serious: No
  Sender: FDA-Public Use
  Company Number: US-GLAXOSMITHKLINE-A0927155A

PATIENT
  Age: 56 Year
  Sex: Male

DRUGS (7)
  1. PREVACID [Concomitant]
  2. LIPITOR [Concomitant]
  3. NIASPAN [Concomitant]
  4. GLUCOPHAGE [Concomitant]
  5. METFORMIN HCL [Concomitant]
  6. AVODART [Suspect]
     Indication: PROSTATOMEGALY
     Dosage: .5MG PER DAY
     Route: 048
     Dates: start: 20110401
  7. CIALIS [Concomitant]

REACTIONS (3)
  - ILL-DEFINED DISORDER [None]
  - DISTURBANCE IN ATTENTION [None]
  - BREAST TENDERNESS [None]
